FAERS Safety Report 14612779 (Version 5)
Quarter: 2018Q2

REPORT INFORMATION
  Report Type: Spontaneous
  Country: US (occurrence: US)
  Receive Date: 20180308
  Receipt Date: 20180530
  Transmission Date: 20180711
  Serious: Yes (Hospitalization)
  Sender: FDA-Public Use
  Company Number: US-PFIZER INC-2018095457

PATIENT
  Age: 67 Year
  Sex: Female
  Weight: 110 kg

DRUGS (2)
  1. AROMASIN [Suspect]
     Active Substance: EXEMESTANE
     Dosage: 25 MG, 1X/DAY
     Route: 048
     Dates: start: 20171001, end: 20171230
  2. AROMASIN [Suspect]
     Active Substance: EXEMESTANE
     Indication: BREAST CANCER STAGE III
     Dosage: 25 MG, 1X/DAY
     Route: 048
     Dates: start: 20170401, end: 20170606

REACTIONS (11)
  - Nausea [Not Recovered/Not Resolved]
  - Rhinorrhoea [Not Recovered/Not Resolved]
  - Sneezing [Not Recovered/Not Resolved]
  - Fatigue [Not Recovered/Not Resolved]
  - Drug prescribing error [Unknown]
  - Flatulence [Not Recovered/Not Resolved]
  - Insomnia [Not Recovered/Not Resolved]
  - Dysgeusia [Not Recovered/Not Resolved]
  - Vomiting [Recovered/Resolved]
  - Diarrhoea [Recovered/Resolved]
  - Blood glucose increased [Recovered/Resolved]

NARRATIVE: CASE EVENT DATE: 201704
